FAERS Safety Report 4407550-2 (Version None)
Quarter: 2004Q3

REPORT INFORMATION
  Report Type: 
  Country: None (occurrence: None)
  Receive Date: 20040721
  Receipt Date: 20040713
  Transmission Date: 20050211
  Serious: Yes (Life-Threatening)
  Sender: FDA-Public Use
  Company Number: F01200401984

PATIENT
  Age: 69 Year
  Sex: Male

DRUGS (8)
  1. OXALIPLATIN [Suspect]
     Indication: GASTROOESOPHAGEAL CANCER
     Dosage: 130 MG/M2 Q3W INTRAVENOUS NOS
     Route: 042
     Dates: start: 20040513, end: 20040513
  2. (CAPECITABINE [Suspect]
     Dosage: 500 MG/M2 BID ORAL
     Route: 048
     Dates: start: 20040513
  3. EPIRUBICIN [Suspect]
     Dosage: 50 MG/M2 Q3W INTRAVENOUS BOLUS
     Route: 040
     Dates: start: 20040513, end: 20040513
  4. ISTIN (AMLODIPINE BESILATE) [Concomitant]
  5. COPROXAMOL (CO-PROXAMOL) [Concomitant]
  6. LANSOPRAZOLE [Concomitant]
  7. LACTULOSE [Concomitant]
  8. BISOPROLOL FUMARATE [Concomitant]

REACTIONS (1)
  - CEREBROVASCULAR ACCIDENT [None]
